FAERS Safety Report 10575285 (Version 1)
Quarter: 2014Q4

REPORT INFORMATION
  Report Type: Spontaneous
  Country: US (occurrence: None)
  Receive Date: 20141107
  Receipt Date: 20141107
  Transmission Date: 20150529
  Serious: Yes (Hospitalization, Other)
  Sender: FDA-Public Use
  Company Number: US-H14001-14-01375

PATIENT
  Age: 27 Year
  Sex: Female

DRUGS (1)
  1. PROPYLTHIOURACIL. [Suspect]
     Active Substance: PROPYLTHIOURACIL
     Indication: BASEDOW^S DISEASE

REACTIONS (10)
  - Anti-neutrophil cytoplasmic antibody positive vasculitis [None]
  - Respiratory failure [None]
  - Blood pressure decreased [None]
  - Acute kidney injury [None]
  - Lung consolidation [None]
  - Gangrene [None]
  - Leg amputation [None]
  - Sinus tachycardia [None]
  - Haemoptysis [None]
  - Haemodialysis [None]
